FAERS Safety Report 21733938 (Version 2)
Quarter: 2023Q1

REPORT INFORMATION
  Report Type: Spontaneous
  Country: US (occurrence: US)
  Receive Date: 20221215
  Receipt Date: 20230316
  Transmission Date: 20230417
  Serious: No
  Sender: FDA-Public Use
  Company Number: US-LUPIN PHARMACEUTICALS INC.-2022-14493

PATIENT

DRUGS (1)
  1. ALBUTEROL SULFATE [Suspect]
     Active Substance: ALBUTEROL SULFATE
     Indication: Chronic obstructive pulmonary disease
     Dosage: UNK  2-4 PUFFS A DAY

REACTIONS (5)
  - Device delivery system issue [Unknown]
  - Drug dose omission by device [Unknown]
  - Device dispensing error [Unknown]
  - Expired product administered [Unknown]
  - No adverse event [Unknown]
